FAERS Safety Report 10024538 (Version 1)
Quarter: 2014Q1

REPORT INFORMATION
  Report Type: Report from Study
  Country: BR (occurrence: BR)
  Receive Date: 20140320
  Receipt Date: 20140320
  Transmission Date: 20141002
  Serious: Yes (Death, Hospitalization, Other)
  Sender: FDA-Public Use
  Company Number: PHHY2014BR032409

PATIENT
  Sex: Female
  Weight: 49 kg

DRUGS (9)
  1. EXELON PATCH [Suspect]
     Indication: DEMENTIA ALZHEIMER^S TYPE
     Dosage: 4.6 MG (9 MG/5 CM2, PATCH 5), QD
     Route: 062
     Dates: start: 2010, end: 2012
  2. EXELON PATCH [Suspect]
     Dosage: 13.3 MG (27 MG/15 CM, PATCH 15), QD
     Route: 062
     Dates: start: 2012
  3. RISPERIDONA [Concomitant]
     Indication: AGGRESSION
     Dosage: UNK
     Dates: start: 2012
  4. LOSARTAN [Concomitant]
     Indication: BLOOD PRESSURE ABNORMAL
     Dosage: UNK
     Dates: start: 2012, end: 2012
  5. CARVEDILOL [Concomitant]
     Indication: CARDIAC DISORDER
     Dosage: UNK
     Dates: start: 201210
  6. CARVEDILOL [Concomitant]
     Dosage: 12.5 MG
  7. FUROSEMIDE [Concomitant]
     Indication: SWELLING
     Dosage: UNK
     Dates: start: 2012
  8. OCUVITE                            /07648701/ [Concomitant]
     Indication: RETINAL DEGENERATION
     Dosage: UNK
     Dates: start: 2010
  9. ROHYDORM [Concomitant]
     Indication: INSOMNIA
     Dosage: UNK
     Dates: start: 2012

REACTIONS (9)
  - Pneumonia [Fatal]
  - Dyspnoea [Fatal]
  - Respiratory failure [Fatal]
  - Cardiomyopathy [Fatal]
  - Cardiac failure [Unknown]
  - Lung disorder [Unknown]
  - Pain in extremity [Unknown]
  - Blood potassium decreased [Unknown]
  - Urinary tract infection [Unknown]
